FAERS Safety Report 5542562-7 (Version None)
Quarter: 2007Q4

REPORT INFORMATION
  Report Type: 
  Country: None (occurrence: None)
  Receive Date: 20071120
  Receipt Date: 20070713
  Transmission Date: 20080405
  Serious: Yes (Other)
  Sender: FDA-Public Use
  Company Number: 39038

PATIENT
  Age: 50 Year
  Sex: Female

DRUGS (4)
  1. METHOTREXATE [Suspect]
     Indication: RHEUMATOID ARTHRITIS
     Dosage: 20MG/SUBCUTANEOUS/X ONCE WE
     Route: 058
     Dates: start: 20070711
  2. REMICADE [Concomitant]
  3. LEUCOVORIN [Concomitant]
  4. FOLIC ACID [Concomitant]

REACTIONS (1)
  - INJECTION SITE REACTION [None]
